FAERS Safety Report 17306785 (Version 2)
Quarter: 2020Q2

REPORT INFORMATION
  Report Type: Report from Study
  Country: US (occurrence: US)
  Receive Date: 20200123
  Receipt Date: 20200519
  Transmission Date: 20200713
  Serious: Yes (Other)
  Sender: FDA-Public Use
  Company Number: PHHO2019US003587

PATIENT
  Age: 51 Year
  Sex: Female
  Weight: 85.2 kg

DRUGS (4)
  1. GILENYA [Suspect]
     Active Substance: FINGOLIMOD HYDROCHLORIDE
     Indication: MULTIPLE SCLEROSIS
     Dosage: 0.5 MG, QD
     Route: 048
     Dates: start: 20190621, end: 20191112
  2. DIMETHYL FUMARATE [Concomitant]
     Active Substance: DIMETHYL FUMARATE
     Dosage: 240 MG, BID
     Route: 065
  3. DIMETHYL FUMARATE [Concomitant]
     Active Substance: DIMETHYL FUMARATE
     Indication: PRODUCT USED FOR UNKNOWN INDICATION
     Dosage: 240 MG, BID
     Route: 065
     Dates: start: 20101210, end: 20150713
  4. TECFIDERA [Suspect]
     Active Substance: DIMETHYL FUMARATE
     Indication: MULTIPLE SCLEROSIS
     Dosage: 240 MG, BID
     Route: 048
     Dates: start: 20101210, end: 20190531

REACTIONS (8)
  - Haemangioma of skin [Not Recovered/Not Resolved]
  - Device dislocation [Recovered/Resolved]
  - Melanocytic naevus [Recovered/Resolved]
  - Papule [Recovered/Resolved]
  - Actinic keratosis [Not Recovered/Not Resolved]
  - Fibrous histiocytoma [Recovered/Resolved]
  - Basal cell carcinoma [Not Recovered/Not Resolved]
  - Seborrhoeic keratosis [Recovered/Resolved]

NARRATIVE: CASE EVENT DATE: 20190326
